FAERS Safety Report 6785694-8 (Version None)
Quarter: 2010Q2

REPORT INFORMATION
  Report Type: 
  Country: None (occurrence: None)
  Receive Date: 20100621
  Receipt Date: 20100621
  Transmission Date: 20101027
  Serious: Yes (Hospitalization)
  Sender: FDA-Public Use
  Company Number: None

PATIENT
  Age: 61 Year
  Sex: Female
  Weight: 104 kg

DRUGS (4)
  1. MICARDIS [Suspect]
     Indication: HYPERTENSION
     Dosage: 80-25 DAILY PO  CHRONIC
     Route: 048
  2. CLONIDINE [Concomitant]
  3. METFORMIN HCL [Concomitant]
  4. SIMVASTATIN [Concomitant]

REACTIONS (1)
  - ANGIOEDEMA [None]
